FAERS Safety Report 8750235 (Version 2)
Quarter: 2013Q1

REPORT INFORMATION
  Report Type: Spontaneous
  Country: US (occurrence: None)
  Receive Date: 20120810
  Receipt Date: 20121120
  Transmission Date: 20140127
  Serious: Yes (Other)
  Sender: FDA-Public Use
  Company Number: ADR-2012-01325

PATIENT
  Sex: Female

DRUGS (4)
  1. BACLOFEN [Suspect]
     Indication: PAIN
  2. BACLOFEN [Suspect]
     Indication: POST LAMINECTOMY SYNDROME
  3. MORPHINE [Concomitant]
  4. BUPIVACAINE [Concomitant]

REACTIONS (5)
  - Muscular weakness [None]
  - Drug effect decreased [None]
  - Implant site pain [None]
  - Back pain [None]
  - Implant site swelling [None]
